FAERS Safety Report 13526211 (Version 1)
Quarter: 2017Q2

REPORT INFORMATION
  Report Type: Spontaneous
  Country: US (occurrence: US)
  Receive Date: 20170509
  Receipt Date: 20170509
  Transmission Date: 20170830
  Serious: No
  Sender: FDA-Public Use
  Company Number: US-B.I. PHARMACEUTICALS,INC./RIDGEFIELD-2017-BI-025032

PATIENT
  Age: 44 Year
  Sex: Female

DRUGS (3)
  1. JARDIANCE [Suspect]
     Active Substance: EMPAGLIFLOZIN
     Indication: DIABETES MELLITUS
     Dosage: 1 TABLET DAILY;  FORM STRENGTH: 10 MG; FORMULATION: TABLET? ADMINISTRATION CORRECT? NR(NOT REPORTED)
     Route: 048
     Dates: start: 20170227
  2. METFORMIN [Concomitant]
     Active Substance: METFORMIN HYDROCHLORIDE
     Indication: PRODUCT USED FOR UNKNOWN INDICATION
     Dosage: FORMULATION: TABLET;
     Route: 048
  3. LOSARTAN. [Concomitant]
     Active Substance: LOSARTAN
     Indication: PRODUCT USED FOR UNKNOWN INDICATION
     Dosage: FORMULATION: TABLET;
     Route: 048

REACTIONS (1)
  - Urinary incontinence [Unknown]
